FAERS Safety Report 7149434-5 (Version None)
Quarter: 2010Q4

REPORT INFORMATION
  Report Type: 
  Country: None (occurrence: None)
  Receive Date: 20101209
  Receipt Date: 20101110
  Transmission Date: 20110411
  Serious: No
  Sender: FDA-Public Use
  Company Number: US-KINGPHARMUSA00001-K201001389

PATIENT
  Age: 44 Year
  Sex: Male
  Weight: 156.92 kg

DRUGS (2)
  1. EMBEDA [Suspect]
     Indication: PAIN IN EXTREMITY
     Dosage: 30 MG, Q 12 HOURS
     Route: 048
     Dates: start: 20101101, end: 20101101
  2. AZOR [Concomitant]
     Indication: HYPERTENSION
     Dosage: UNK
     Route: 048

REACTIONS (1)
  - HYPOTENSION [None]
